FAERS Safety Report 6734429-3 (Version None)
Quarter: 2010Q2

REPORT INFORMATION
  Report Type: 
  Country: None (occurrence: None)
  Receive Date: 20100520
  Receipt Date: 20100510
  Transmission Date: 20101027
  Serious: Yes (Hospitalization, Other)
  Sender: FDA-Public Use
  Company Number: PL-ABBOTT-10P-129-0641723-00

PATIENT
  Sex: Male
  Weight: 93 kg

DRUGS (3)
  1. LUCRIN DEPOT 11.25 MG [Suspect]
     Indication: PROSTATE CANCER
     Route: 030
     Dates: start: 20081127
  2. SPIRONOL [Concomitant]
     Indication: DRUG USE FOR UNKNOWN INDICATION
  3. RADIOTHERAPY [Concomitant]
     Indication: DRUG USE FOR UNKNOWN INDICATION
     Dates: start: 20081113, end: 20090120

REACTIONS (3)
  - ABDOMINAL PAIN [None]
  - COLON ADENOMA [None]
  - ERECTILE DYSFUNCTION [None]
